FAERS Safety Report 5235419-2 (Version None)
Quarter: 2007Q1

REPORT INFORMATION
  Report Type: 
  Country: None (occurrence: None)
  Receive Date: 20070212
  Receipt Date: 20070206
  Transmission Date: 20070707
  Serious: Yes (Other)
  Sender: FDA-Public Use
  Company Number: BE-BRISTOL-MYERS SQUIBB COMPANY-13672001

PATIENT
  Age: 74 Year
  Sex: Female

DRUGS (1)
  1. MITOMYCIN-C BULK POWDER [Suspect]
     Route: 043

REACTIONS (1)
  - BLADDER PERFORATION [None]
